FAERS Safety Report 7957062-4 (Version None)
Quarter: 2011Q4

REPORT INFORMATION
  Report Type: 
  Country: None (occurrence: None)
  Receive Date: 20111205
  Receipt Date: 20111129
  Transmission Date: 20120403
  Serious: Yes (Hospitalization, Other)
  Sender: FDA-Public Use
  Company Number: ES-ABBOTT-11P-144-0871843-00

PATIENT
  Age: 57 Year
  Sex: Male

DRUGS (3)
  1. HUMIRA [Suspect]
     Indication: POLYARTHRITIS
     Route: 058
     Dates: end: 20111010
  2. METHOTREXATE SODIUM [Concomitant]
     Indication: POLYARTHRITIS
     Dosage: 15 MG/0.30 ML
     Route: 058
  3. NSAID [Concomitant]
     Indication: POLYARTHRITIS
     Route: 048

REACTIONS (6)
  - DECREASED APPETITE [None]
  - WEIGHT DECREASED [None]
  - PYREXIA [None]
  - TUBERCULOSIS [None]
  - EMPHYSEMA [None]
  - ASTHENIA [None]
